FAERS Safety Report 9731355 (Version 1)
Quarter: 2013Q4

REPORT INFORMATION
  Report Type: Spontaneous
  Country: US (occurrence: US)
  Receive Date: 20131203
  Receipt Date: 20131203
  Transmission Date: 20140711
  Serious: No
  Sender: FDA-Public Use
  Company Number: US-NOVEN-13US007578

PATIENT
  Age: 34 Year
  Sex: Male

DRUGS (1)
  1. FENTANYL [Suspect]
     Indication: BACK PAIN
     Dosage: 50 UG, UNK
     Route: 062
     Dates: start: 20130817, end: 20130820

REACTIONS (1)
  - Application site rash [Not Recovered/Not Resolved]
